FAERS Safety Report 16424514 (Version 1)
Quarter: 2019Q2

REPORT INFORMATION
  Report Type: Spontaneous
  Country: BR (occurrence: BR)
  Receive Date: 20190613
  Receipt Date: 20190613
  Transmission Date: 20190711
  Serious: Yes (Other)
  Sender: FDA-Public Use
  Company Number: BR-TORRENT-00005008

PATIENT
  Age: 91 Year
  Sex: Female
  Weight: 53 kg

DRUGS (4)
  1. PURAN [Concomitant]
     Active Substance: LEVOTHYROXINE SODIUM
     Indication: THYROID DISORDER
     Dosage: ONE TABLET DAILY
     Route: 048
     Dates: start: 2014
  2. LORAZEPAM. [Concomitant]
     Active Substance: LORAZEPAM
     Indication: SLEEP DISORDER
     Dosage: HALF TABLET DAILY
     Route: 048
     Dates: start: 2009
  3. LAMITOR 50 MG [Suspect]
     Active Substance: LAMOTRIGINE
     Indication: SEIZURE
     Dates: start: 20190502, end: 2019
  4. LAMITOR 25 MG [Suspect]
     Active Substance: LAMOTRIGINE
     Indication: SEIZURE
     Dosage: LAMITOR CD 25 MG HALF TABLET IN THE MORNING AND HALF TABLET AT NIGHT, THE FIRST TREATMENT MONTH,
     Route: 048
     Dates: start: 201904, end: 2019

REACTIONS (7)
  - Product prescribing error [Unknown]
  - Erythema [Not Recovered/Not Resolved]
  - Pruritus [Not Recovered/Not Resolved]
  - Dermatitis allergic [Not Recovered/Not Resolved]
  - Rash generalised [Not Recovered/Not Resolved]
  - Wrong technique in product usage process [Unknown]
  - Condition aggravated [Not Recovered/Not Resolved]

NARRATIVE: CASE EVENT DATE: 201904
